FAERS Safety Report 15009774 (Version 2)
Quarter: 2019Q2

REPORT INFORMATION
  Report Type: Other
  Country: GB (occurrence: GB)
  Receive Date: 20180614
  Receipt Date: 20190401
  Transmission Date: 20190711
  Serious: No
  Sender: FDA-Public Use
  Company Number: GB-LUPIN PHARMACEUTICALS INC.-2018-02178

PATIENT
  Age: 38 Year
  Sex: Female
  Weight: 78.46 kg

DRUGS (2)
  1. GABAPENTIN. [Interacting]
     Active Substance: GABAPENTIN
     Indication: SCIATIC NERVE INJURY
     Dosage: 1800 MG, QD
     Route: 048
     Dates: start: 201702, end: 201704
  2. SERTRALINE [Suspect]
     Active Substance: SERTRALINE HYDROCHLORIDE
     Indication: PRODUCT USED FOR UNKNOWN INDICATION
     Dosage: UNK
     Route: 065

REACTIONS (3)
  - Incontinence [Recovered/Resolved]
  - Drug interaction [Unknown]
  - Sexual dysfunction [Recovered/Resolved]

NARRATIVE: CASE EVENT DATE: 201703
